FAERS Safety Report 6143966 (Version 9)
Quarter: 2012Q4

REPORT INFORMATION
  Report Type: 
  Country: US (occurrence: US)
  Receive Date: 20061010
  Receipt Date: 20121106
  Transmission Date: 20130627
  Serious: Yes (Death, Hospitalization, Other)
  Sender: FDA-Public Use
  Company Number: PHEH2006US12310

PATIENT
  Age: 72 None
  Sex: Male
  Weight: 64.41 kg

DRUGS (60)
  1. AREDIA [Suspect]
     Indication: MULTIPLE MYELOMA
     Dosage: UNK
  2. ZOMETA [Suspect]
     Indication: MULTIPLE MYELOMA
  3. LODINE [Concomitant]
  4. ATACAND [Concomitant]
  5. PATANOL [Concomitant]
  6. PERCOCET [Concomitant]
  7. HYDROCODONE [Concomitant]
  8. PENICILLIN V [Concomitant]
  9. AUGMENTIN                               /SCH/ [Concomitant]
  10. VIBRAMYCIN                              /NET/ [Concomitant]
  11. VELCADE [Concomitant]
  12. RADIATION THERAPY [Concomitant]
  13. DOXYCYCLINE [Concomitant]
  14. PERIDEX [Concomitant]
  15. HYOSCYAMINE SULFATE [Concomitant]
  16. LORAZEPAM [Concomitant]
  17. OXYCODONE [Concomitant]
  18. PREDNISONE [Concomitant]
  19. INDOMETHACIN [Concomitant]
  20. TOLMETIN [Concomitant]
  21. INDOCIN [Concomitant]
  22. VITAMIN B6 [Concomitant]
  23. VITAMIN B12 [Concomitant]
  24. FOLIC ACID [Concomitant]
  25. COLCHICINE [Concomitant]
  26. ALBALON [Concomitant]
  27. NASOCORT [Concomitant]
  28. ALLOPURINOL [Concomitant]
  29. CORTICOSTEROIDS [Concomitant]
  30. VIAGRA [Concomitant]
  31. THALIDOMIDE [Concomitant]
  32. TYLENOL [Concomitant]
  33. CYCLOBENZAPRINE [Concomitant]
  34. FLEXERIL [Concomitant]
  35. LOZOL [Concomitant]
  36. LIDODERM [Concomitant]
  37. FLOMAX ^BOEHRINGER INGELHEIM^ [Concomitant]
  38. INDAPAMIDE [Concomitant]
  39. LEVBID [Concomitant]
  40. DETROL [Concomitant]
  41. CIPRO [Concomitant]
  42. CHOLESTYRAMINE RESIN [Concomitant]
  43. LOPERAMIDE [Concomitant]
  44. SODIUM BICARBONATE [Concomitant]
  45. CHEMOTHERAPEUTICS NOS [Concomitant]
  46. ZADITOR [Concomitant]
  47. AMBIEN [Concomitant]
  48. MULTIVITAMINS [Concomitant]
  49. METOPROLOL [Concomitant]
  50. CYANOCOBALAMIN [Concomitant]
  51. LISINOPRIL [Concomitant]
  52. ZOLPIDEM [Concomitant]
  53. SALT TABLETS [Concomitant]
  54. PROCRIT                            /00909301/ [Concomitant]
  55. LOPRESSOR [Concomitant]
  56. CENTRUM SILVER [Concomitant]
  57. ETODOLAC [Concomitant]
  58. STOOL SOFTENER [Concomitant]
  59. OXYCODONE/APAP [Concomitant]
  60. METOPROLOL TARTRATE [Concomitant]

REACTIONS (88)
  - Death [Fatal]
  - Plasma cell myeloma [Unknown]
  - Osteonecrosis of jaw [Unknown]
  - Bone disorder [Unknown]
  - Pain [Unknown]
  - Deformity [Unknown]
  - Hypophagia [Unknown]
  - Emotional distress [Unknown]
  - Anxiety [Unknown]
  - Life expectancy shortened [Unknown]
  - General physical health deterioration [Unknown]
  - Decreased interest [Unknown]
  - Osteomyelitis chronic [Unknown]
  - Tinea cruris [Unknown]
  - Scoliosis [Unknown]
  - Spinal osteoarthritis [Unknown]
  - Anaemia [Unknown]
  - Musculoskeletal pain [Unknown]
  - Pyrexia [Unknown]
  - Tremor [Unknown]
  - Psychomotor hyperactivity [Unknown]
  - Dyspnoea [Unknown]
  - Somnolence [Unknown]
  - Dizziness [Unknown]
  - Heart rate increased [Unknown]
  - Tooth abscess [Unknown]
  - Myopathy [Unknown]
  - Neuropathy peripheral [Unknown]
  - Renal failure [Unknown]
  - Radiculopathy [Unknown]
  - Intervertebral disc protrusion [Unknown]
  - Nerve root compression [Unknown]
  - Osteoarthritis [Unknown]
  - Spinal column stenosis [Unknown]
  - Muscle spasms [Unknown]
  - Osteopenia [Unknown]
  - Tendon disorder [Unknown]
  - Presyncope [Unknown]
  - Abdominal pain upper [Unknown]
  - Malaise [Unknown]
  - Loss of consciousness [Unknown]
  - Syncope [Unknown]
  - Respiratory arrest [Unknown]
  - Aortic dilatation [Unknown]
  - Tricuspid valve incompetence [Unknown]
  - Aortic arteriosclerosis [Unknown]
  - Ventricular hypertrophy [Unknown]
  - Orthostatic hypotension [Unknown]
  - Spinal compression fracture [Unknown]
  - Pleural effusion [Unknown]
  - Aspiration pleural cavity [Unknown]
  - Lung infiltration [Unknown]
  - Failure to thrive [Unknown]
  - Implant site induration [Unknown]
  - Pallor [Unknown]
  - Weight decreased [Unknown]
  - Asthenia [Unknown]
  - Gait disturbance [Unknown]
  - Blepharitis [Unknown]
  - Dry eye [Unknown]
  - Plasmacytoma [Unknown]
  - Inguinal hernia [Unknown]
  - Skin cancer [Unknown]
  - Hydrocele [Unknown]
  - Diarrhoea [Recovering/Resolving]
  - Dehydration [Recovering/Resolving]
  - Second primary malignancy [Recovering/Resolving]
  - Testicular swelling [Unknown]
  - Metabolic acidosis [Recovering/Resolving]
  - Blood urea increased [Recovering/Resolving]
  - Blood creatinine increased [Recovering/Resolving]
  - Aortic aneurysm [Unknown]
  - Hypercalcaemia [Unknown]
  - Hypercholesterolaemia [Unknown]
  - Thrombocytopenia [Unknown]
  - Diverticulum intestinal [Unknown]
  - Dyspnoea exertional [Unknown]
  - Feeling abnormal [Unknown]
  - Gout [Unknown]
  - Hyperlipidaemia [Unknown]
  - Cataract [Unknown]
  - Cardiomegaly [Unknown]
  - Urinary tract infection [Unknown]
  - Constipation [Unknown]
  - Bone swelling [Unknown]
  - Inflammation [Unknown]
  - Hypoaesthesia oral [Unknown]
  - Soft tissue mass [Unknown]
